FAERS Safety Report 9120890 (Version 2)
Quarter: 2013Q1

REPORT INFORMATION
  Report Type: Spontaneous
  Country: FR (occurrence: FR)
  Receive Date: 20130226
  Receipt Date: 20130318
  Transmission Date: 20140127
  Serious: Yes (Life-Threatening, Hospitalization)
  Sender: FDA-Public Use
  Company Number: FR-ROCHE-1194961

PATIENT
  Age: 61 Year
  Sex: Female

DRUGS (12)
  1. AVASTIN [Suspect]
     Indication: BREAST CANCER METASTATIC
     Route: 042
  2. AVASTIN [Suspect]
     Dosage: SEVENTH COURSE OF MAINTENANCE THERAPY
     Route: 042
     Dates: start: 20130204
  3. TAXOL [Suspect]
     Indication: BREAST CANCER METASTATIC
     Route: 042
  4. TAXOL [Suspect]
     Dosage: SEVENTH COURSE OF MAINTENANCE THERAPY
     Route: 042
     Dates: start: 20130204
  5. TAXOL [Suspect]
     Route: 065
     Dates: start: 20130218
  6. TAXOL [Suspect]
     Dosage: NEW COURSE OF THERAPY
     Route: 065
  7. RANIPLEX [Suspect]
     Indication: PROPHYLAXIS
     Route: 042
  8. RANIPLEX [Suspect]
     Dosage: NEW COURSE OF THERAPY
     Route: 065
  9. INEXIUM [Suspect]
     Indication: PRODUCT USED FOR UNKNOWN INDICATION
     Route: 048
  10. COZAAR [Concomitant]
     Route: 065
  11. DETENSIEL [Concomitant]
     Route: 065
  12. TAHOR [Concomitant]
     Route: 065

REACTIONS (4)
  - Epistaxis [Not Recovered/Not Resolved]
  - Ecchymosis [Not Recovered/Not Resolved]
  - Petechiae [Not Recovered/Not Resolved]
  - Thrombocytopenia [Not Recovered/Not Resolved]
